FAERS Safety Report 6782270-8 (Version None)
Quarter: 2010Q2

REPORT INFORMATION
  Report Type: 
  Country: None (occurrence: None)
  Receive Date: 20100621
  Receipt Date: 20100610
  Transmission Date: 20101027
  Serious: No
  Sender: FDA-Public Use
  Company Number: US-JNJFOC-20100604129

PATIENT
  Sex: Female
  Weight: 81.65 kg

DRUGS (6)
  1. DURAGESIC-100 [Suspect]
     Indication: FIBROMYALGIA
     Dosage: NDC# 5045803505
     Route: 062
  2. DURAGESIC-100 [Suspect]
     Dosage: NDC# 5045803305. 1 EVERY 60 HOURS * 2 TIMES OFF 48 HOURS
     Route: 062
  3. DURAGESIC-100 [Suspect]
     Dosage: NDC# 5045803505
     Route: 062
  4. ACCOLATE [Concomitant]
     Indication: ASTHMA
     Route: 048
  5. SAVELLA [Concomitant]
     Indication: FIBROMYALGIA
     Route: 048
  6. ALBUTEROL [Concomitant]
     Indication: ASTHMA
     Route: 055

REACTIONS (6)
  - DRUG DOSE OMISSION [None]
  - EYE SWELLING [None]
  - OEDEMA PERIPHERAL [None]
  - PRODUCT QUALITY ISSUE [None]
  - SWELLING FACE [None]
  - WITHDRAWAL SYNDROME [None]
